FAERS Safety Report 11673257 (Version 1)
Quarter: 2015Q4

REPORT INFORMATION
  Report Type: Spontaneous
  Country: US (occurrence: US)
  Receive Date: 20151027
  Receipt Date: 20151027
  Transmission Date: 20160304
  Serious: No
  Sender: FDA-Public Use
  Company Number: US-ELI_LILLY_AND_COMPANY-US201006001097

PATIENT
  Sex: Female

DRUGS (2)
  1. FORTEO [Suspect]
     Active Substance: TERIPARATIDE
     Dosage: 20 UG, DAILY (1/D)
  2. FORTEO [Suspect]
     Active Substance: TERIPARATIDE
     Indication: OSTEOPOROSIS
     Dosage: 20 UG, UNK

REACTIONS (10)
  - Rhinalgia [Unknown]
  - Muscular weakness [Unknown]
  - Swelling face [Unknown]
  - Arthralgia [Unknown]
  - Nasal discomfort [Unknown]
  - Rash [Unknown]
  - Lacrimation increased [Unknown]
  - Back pain [Recovering/Resolving]
  - Pain of skin [Unknown]
  - Eye irritation [Unknown]
